FAERS Safety Report 9765458 (Version 2)
Quarter: 2014Q1

REPORT INFORMATION
  Report Type: Spontaneous
  Country: US (occurrence: US)
  Receive Date: 20131217
  Receipt Date: 20140113
  Transmission Date: 20141002
  Serious: No
  Sender: FDA-Public Use
  Company Number: US-BIOGENIDEC-2013BI112110

PATIENT
  Age: 51 Year
  Sex: Female
  Weight: 113 kg

DRUGS (15)
  1. TECFIDERA [Suspect]
     Indication: RELAPSING-REMITTING MULTIPLE SCLEROSIS
     Route: 048
     Dates: start: 2013
  2. TECFIDERA [Suspect]
     Indication: RELAPSING-REMITTING MULTIPLE SCLEROSIS
     Route: 048
     Dates: start: 20130716, end: 20130722
  3. TECFIDERA [Suspect]
     Indication: RELAPSING-REMITTING MULTIPLE SCLEROSIS
     Dates: start: 20130719
  4. TECFIDERA [Suspect]
     Indication: RELAPSING-REMITTING MULTIPLE SCLEROSIS
     Route: 048
     Dates: start: 20130720, end: 20130727
  5. TECFIDERA [Suspect]
     Indication: RELAPSING-REMITTING MULTIPLE SCLEROSIS
     Route: 048
     Dates: start: 20130723
  6. TECFIDERA [Suspect]
     Indication: RELAPSING-REMITTING MULTIPLE SCLEROSIS
     Route: 048
     Dates: start: 20130727
  7. FOSAMAX [Concomitant]
  8. LYRICA [Concomitant]
  9. ASPIRIN [Concomitant]
  10. BACLOFEN [Concomitant]
  11. VIIBRYD [Concomitant]
  12. B COMPLEX [Concomitant]
  13. BACTRIM [Concomitant]
  14. B12 ACTIVE [Concomitant]
  15. D3 [Concomitant]

REACTIONS (1)
  - Alopecia [Not Recovered/Not Resolved]
